FAERS Safety Report 7131640-7 (Version None)
Quarter: 2010Q4

REPORT INFORMATION
  Report Type: 
  Country: None (occurrence: None)
  Receive Date: 20101201
  Receipt Date: 20101126
  Transmission Date: 20110411
  Serious: Yes (Other)
  Sender: FDA-Public Use
  Company Number: SE-PFIZER INC-2010158921

PATIENT
  Age: 6 Year
  Sex: Male

DRUGS (1)
  1. ZOLOFT [Suspect]
     Indication: OBSESSIVE-COMPULSIVE DISORDER
     Dosage: 12.5 MG, 1X/DAY
     Dates: start: 20101022

REACTIONS (2)
  - LEARNING DISORDER [None]
  - MEMORY IMPAIRMENT [None]
